FAERS Safety Report 16847320 (Version 2)
Quarter: 2020Q1

REPORT INFORMATION
  Report Type: Report from Study
  Country: US (occurrence: US)
  Receive Date: 20190924
  Receipt Date: 20200326
  Transmission Date: 20200409
  Serious: Yes (Hospitalization)
  Sender: FDA-Public Use
  Company Number: US-ACTELION-A-NJ2019-195908

PATIENT
  Sex: Female

DRUGS (30)
  1. CLOPIDOGREL [Concomitant]
     Active Substance: CLOPIDOGREL BISULFATE
  2. METOCLOPRAM [Concomitant]
     Active Substance: METOCLOPRAMIDE
  3. METOPROLOL. [Concomitant]
     Active Substance: METOPROLOL
  4. MIRTAZAPINE. [Concomitant]
     Active Substance: MIRTAZAPINE
  5. FOLIC ACID. [Concomitant]
     Active Substance: FOLIC ACID
  6. KETOROLAC [Concomitant]
     Active Substance: KETOROLAC TROMETHAMINE
  7. LEXAPRO [Concomitant]
     Active Substance: ESCITALOPRAM OXALATE
  8. TRAMADOL. [Concomitant]
     Active Substance: TRAMADOL
  9. AMLODIPINE [Concomitant]
     Active Substance: AMLODIPINE BESYLATE
  10. METHOTREXATE. [Concomitant]
     Active Substance: METHOTREXATE
  11. VITAMIN D [Concomitant]
     Active Substance: VITAMIN D NOS
  12. OPSUMIT [Suspect]
     Active Substance: MACITENTAN
     Indication: PULMONARY HYPERTENSION
     Dosage: 10 MG, QD
     Route: 048
     Dates: start: 20181009
  13. XELJANZ [Suspect]
     Active Substance: TOFACITINIB CITRATE
     Indication: ARTHRITIS
     Dosage: 5 MG, BID
     Route: 048
     Dates: start: 20181127
  14. AMITIZA [Concomitant]
     Active Substance: LUBIPROSTONE
  15. HYDROCODONE BITARTRATE AND ACETAMINOPHEN [Concomitant]
     Active Substance: ACETAMINOPHEN\HYDROCODONE BITARTRATE
  16. NIFEDIPINE. [Concomitant]
     Active Substance: NIFEDIPINE
  17. ROSUVASTATIN. [Concomitant]
     Active Substance: ROSUVASTATIN
  18. KRISTALOSE [Concomitant]
     Active Substance: LACTULOSE
  19. OMEPRAZOLE. [Concomitant]
     Active Substance: OMEPRAZOLE
  20. TRIAMCINOLONE [Concomitant]
     Active Substance: TRIAMCINOLONE
  21. WARFARIN [Concomitant]
     Active Substance: WARFARIN
  22. BACLOFEN. [Concomitant]
     Active Substance: BACLOFEN
  23. FEXOFENADINE [Concomitant]
     Active Substance: FEXOFENADINE HYDROCHLORIDE
  24. PROPOXYPHENE AND ACETAMINOPHEN [Concomitant]
     Active Substance: ACETAMINOPHEN\PROPOXYPHENE NAPSYLATE
  25. TORSEMIDE. [Concomitant]
     Active Substance: TORSEMIDE
  26. TRAZODONE [Concomitant]
     Active Substance: TRAZODONE HYDROCHLORIDE
  27. CEPHALEXIN. [Concomitant]
     Active Substance: CEPHALEXIN
  28. CLOBETASOL [Concomitant]
     Active Substance: CLOBETASOL
  29. PANTOPRAZOLE [Concomitant]
     Active Substance: PANTOPRAZOLE
  30. VENLAFAXINE [Concomitant]
     Active Substance: VENLAFAXINE HYDROCHLORIDE

REACTIONS (3)
  - Hospitalisation [Unknown]
  - Rib fracture [Unknown]
  - Fall [Unknown]
